FAERS Safety Report 6240589-3 (Version None)
Quarter: 2009Q2

REPORT INFORMATION
  Report Type: 
  Country: None (occurrence: None)
  Receive Date: 20090623
  Receipt Date: 20081020
  Transmission Date: 20091009
  Serious: No
  Sender: FDA-Public Use
  Company Number: US-ASTRAZENECA-2008UW23121

PATIENT
  Age: 73 Year
  Sex: Female
  Weight: 63.5 kg

DRUGS (2)
  1. PULMICORT FLEXHALER [Suspect]
     Indication: ASTHMA
     Dosage: 180 UG 120 DOSES
     Route: 055
     Dates: start: 20080901, end: 20081001
  2. ASPIRIN [Concomitant]

REACTIONS (2)
  - GLOSSODYNIA [None]
  - LARYNGITIS [None]
